FAERS Safety Report 6696887-2 (Version None)
Quarter: 2010Q2

REPORT INFORMATION
  Report Type: 
  Country: None (occurrence: None)
  Receive Date: 20100426
  Receipt Date: 20100413
  Transmission Date: 20101027
  Serious: Yes (Other)
  Sender: FDA-Public Use
  Company Number: PHHY2010AR23058

PATIENT
  Sex: Male

DRUGS (1)
  1. DIOVAN [Suspect]
     Indication: HYPERTENSION
     Dosage: 160 MG, 1 TABLET/DAY

REACTIONS (4)
  - ASTHMA [None]
  - BRONCHIAL OBSTRUCTION [None]
  - CARDIAC MURMUR [None]
  - COUGH [None]
